FAERS Safety Report 9511071 (Version 1)
Quarter: 2013Q3

REPORT INFORMATION
  Report Type: Spontaneous
  Country: US (occurrence: None)
  Receive Date: 20130909
  Receipt Date: 20130909
  Transmission Date: 20140515
  Serious: Yes (Other)
  Sender: FDA-Public Use
  Company Number: None

PATIENT
  Age: 80 Year
  Sex: Male

DRUGS (1)
  1. TEMODAR 140 MG SCHERING-PLOUGH CORP [Suspect]
     Indication: BRAIN NEOPLASM
     Route: 048
     Dates: start: 20130719, end: 20130819

REACTIONS (2)
  - Dehydration [None]
  - Fatigue [None]
